FAERS Safety Report 5679435-5 (Version None)
Quarter: 2008Q1

REPORT INFORMATION
  Report Type: 
  Country: None (occurrence: None)
  Receive Date: 20080325
  Receipt Date: 20080314
  Transmission Date: 20080703
  Serious: Yes (Death)
  Sender: FDA-Public Use
  Company Number: US-ELI_LILLY_AND_COMPANY-US200802002568

PATIENT
  Age: 87 Year
  Sex: Female
  Weight: 61.678 kg

DRUGS (4)
  1. EVISTA [Suspect]
     Indication: OSTEOPOROSIS
     Dosage: 60 MG, DAILY (1/D)
     Dates: start: 19980522, end: 20071019
  2. LANTUS [Concomitant]
  3. VASOTEC [Concomitant]
  4. METOPROLOL TARTRATE [Concomitant]

REACTIONS (3)
  - ABDOMINAL PAIN [None]
  - BREAST CANCER [None]
  - HEPATIC NEOPLASM MALIGNANT [None]
